FAERS Safety Report 9695221 (Version 1)
Quarter: 2013Q4

REPORT INFORMATION
  Report Type: Spontaneous
  Country: US (occurrence: US)
  Receive Date: 20131119
  Receipt Date: 20131119
  Transmission Date: 20140711
  Serious: Yes (Other)
  Sender: FDA-Public Use
  Company Number: US-BAYER-2013-139411

PATIENT
  Age: 24 Year
  Sex: Female

DRUGS (5)
  1. YASMIN [Suspect]
     Route: 048
  2. OCELLA [Suspect]
     Route: 048
  3. DOXYCYCLINE [Concomitant]
     Dosage: 100 MG, UNK
  4. CHLORPHENAMINE MALEATE W/PHENYLEPHRINE HCL [Concomitant]
  5. PROMETHAZINE DM [Concomitant]

REACTIONS (1)
  - Deep vein thrombosis [None]
